FAERS Safety Report 17734934 (Version 1)
Quarter: 2020Q2

REPORT INFORMATION
  Report Type: Spontaneous
  Country: US (occurrence: US)
  Receive Date: 20200501
  Receipt Date: 20200501
  Transmission Date: 20200714
  Serious: No
  Sender: FDA-Public Use
  Company Number: US-TORRENT-00009393

PATIENT
  Sex: Male
  Weight: 79 kg

DRUGS (2)
  1. CITALOPRAM [Suspect]
     Active Substance: CITALOPRAM HYDROBROMIDE
     Indication: ANXIETY
     Dosage: LAST SUNDAY
     Dates: start: 201910
  2. ALPRAZOLAM. [Concomitant]
     Active Substance: ALPRAZOLAM
     Indication: PRODUCT USED FOR UNKNOWN INDICATION

REACTIONS (3)
  - Insomnia [Unknown]
  - Pollakiuria [Unknown]
  - Polyuria [Unknown]

NARRATIVE: CASE EVENT DATE: 201910
